FAERS Safety Report 10717962 (Version 2)
Quarter: 2015Q1

REPORT INFORMATION
  Report Type: Report from Study
  Country: DE (occurrence: DE)
  Receive Date: 20150116
  Receipt Date: 20150211
  Transmission Date: 20150721
  Serious: Yes (Hospitalization)
  Sender: FDA-Public Use
  Company Number: DE-ABBVIE-15K-062-1332007-00

PATIENT
  Sex: Female

DRUGS (13)
  1. MERIMONO [Concomitant]
     Active Substance: ESTRADIOL VALERATE
     Indication: PRODUCT USED FOR UNKNOWN INDICATION
     Route: 048
  2. OMEPRAZOLE. [Concomitant]
     Active Substance: OMEPRAZOLE
     Indication: PRODUCT USED FOR UNKNOWN INDICATION
  3. DICLOFENAC [Concomitant]
     Active Substance: DICLOFENAC
     Indication: PRODUCT USED FOR UNKNOWN INDICATION
     Route: 048
  4. LEVOTHYROXINE [Concomitant]
     Active Substance: LEVOTHYROXINE
     Indication: PRODUCT USED FOR UNKNOWN INDICATION
     Route: 048
  5. VESIKUR [Concomitant]
     Active Substance: SOLIFENACIN SUCCINATE
     Indication: PRODUCT USED FOR UNKNOWN INDICATION
     Route: 048
  6. AMLODIPINE [Concomitant]
     Active Substance: AMLODIPINE BESYLATE
     Indication: PRODUCT USED FOR UNKNOWN INDICATION
     Route: 048
  7. RAMIPRIL. [Concomitant]
     Active Substance: RAMIPRIL
     Indication: PRODUCT USED FOR UNKNOWN INDICATION
     Route: 048
  8. PANTOPRAZOLE [Concomitant]
     Active Substance: PANTOPRAZOLE SODIUM
     Indication: PRODUCT USED FOR UNKNOWN INDICATION
  9. ASPIRIN. [Concomitant]
     Active Substance: ASPIRIN
     Indication: PRODUCT USED FOR UNKNOWN INDICATION
     Route: 048
  10. SIMVASTATIN. [Concomitant]
     Active Substance: SIMVASTATIN
     Indication: PRODUCT USED FOR UNKNOWN INDICATION
     Route: 048
  11. CALCIUM CARBONATE W/COLECALCIFEROL [Concomitant]
     Active Substance: CALCIUM CARBONATE\CHOLECALCIFEROL
     Indication: PRODUCT USED FOR UNKNOWN INDICATION
  12. HUMIRA [Suspect]
     Active Substance: ADALIMUMAB
     Indication: RHEUMATOID ARTHRITIS
     Route: 058
     Dates: start: 200910, end: 201306
  13. LODOTRA [Concomitant]
     Active Substance: PREDNISONE
     Indication: PRODUCT USED FOR UNKNOWN INDICATION

REACTIONS (33)
  - Lumbar spinal stenosis [Unknown]
  - Myelitis [Recovering/Resolving]
  - Tricuspid valve incompetence [Unknown]
  - Intervertebral disc protrusion [Unknown]
  - Superinfection bacterial [Unknown]
  - Respiratory failure [Recovering/Resolving]
  - Herpes zoster [Recovering/Resolving]
  - Gait disturbance [Unknown]
  - Pulmonary fibrosis [Recovering/Resolving]
  - Urinary incontinence [Unknown]
  - Diastolic dysfunction [Unknown]
  - Hypoxia [Unknown]
  - Radiculopathy [Unknown]
  - Mitral valve incompetence [Unknown]
  - Intervertebral disc protrusion [Not Recovered/Not Resolved]
  - Muscular weakness [Unknown]
  - Pain [Unknown]
  - Bronchitis chronic [Unknown]
  - Radiculitis lumbosacral [Unknown]
  - Emphysema [Unknown]
  - Abdominal pain [Unknown]
  - Blood lactate dehydrogenase increased [Unknown]
  - White blood cell count increased [Unknown]
  - Lung disorder [Unknown]
  - C-reactive protein increased [Recovering/Resolving]
  - General physical health deterioration [Recovered/Resolved]
  - Paraparesis [Recovering/Resolving]
  - Respiratory gas exchange disorder [Not Recovered/Not Resolved]
  - Pneumonia [Recovered/Resolved]
  - Cytomegalovirus infection [Recovered/Resolved]
  - Back pain [Unknown]
  - Rales [Unknown]
  - Stress [Unknown]

NARRATIVE: CASE EVENT DATE: 20130515
